FAERS Safety Report 8382571-6 (Version None)
Quarter: 2012Q2

REPORT INFORMATION
  Report Type: 
  Country: None (occurrence: None)
  Receive Date: 20120524
  Receipt Date: 20120510
  Transmission Date: 20120825
  Serious: Yes (Congenital Anomaly)
  Sender: FDA-Public Use
  Company Number: CHNY2012CH000578

PATIENT

DRUGS (8)
  1. SYMBICORT [Suspect]
     Indication: BRONCHITIS
     Dosage: 2 DF, QD
     Route: 064
     Dates: start: 20111217, end: 20111218
  2. IBUPROFEN TABLETS [Suspect]
     Indication: BRONCHITIS
     Dosage: 4 DF, QD
     Route: 064
     Dates: start: 20111217
  3. RESYL PLUS [Suspect]
     Indication: BRONCHITIS
     Dosage: 3 DF, QD
     Route: 064
     Dates: start: 20111217, end: 20111219
  4. TOLPERISONE HYDROCHLORIDE [Suspect]
     Indication: BRONCHITIS
     Dosage: 5 DF, QD
     Route: 064
     Dates: start: 20111217, end: 20111221
  5. VOLTAREN [Suspect]
     Indication: BRONCHITIS
     Dosage: 1 DF, QD
     Route: 064
     Dates: start: 20111217
  6. DIPYRONE TAB [Suspect]
     Indication: BRONCHITIS
     Dosage: 2 DF, QD
     Route: 064
     Dates: start: 20111217, end: 20111220
  7. ACETYLCYSTEINE [Suspect]
     Indication: BRONCHITIS
     Dosage: 2 DF, QD
     Route: 064
     Dates: start: 20111217, end: 20111219
  8. ACETAMINOPHEN [Suspect]
     Indication: BRONCHITIS
     Dosage: 4 DF, QD
     Route: 064
     Dates: start: 20111217

REACTIONS (2)
  - FOETAL EXPOSURE DURING PREGNANCY [None]
  - TRISOMY 21 [None]
